FAERS Safety Report 23088608 (Version 1)
Quarter: 2023Q4

REPORT INFORMATION
  Report Type: Spontaneous
  Country: US (occurrence: US)
  Receive Date: 20231020
  Receipt Date: 20231020
  Transmission Date: 20240110
  Serious: Yes (Other)
  Sender: FDA-Public Use
  Company Number: US-drreddys-SPO/USA/23/0179758

PATIENT
  Age: 25 Year
  Sex: Female

DRUGS (3)
  1. ACCUTANE [Suspect]
     Active Substance: ISOTRETINOIN
     Indication: Product used for unknown indication
     Dosage: RMA ISSUE DATES: 27 APRIL 2023 10:16:33 AM
  2. ACCUTANE [Suspect]
     Active Substance: ISOTRETINOIN
     Dosage: RMA ISSUE DATES:  01 JUNE 2023 10:07:27 AM, 29 JUNE 2023 11:56:00 AM, 03 AUGUST 2023 02:05:21 PM, 08
  3. ACCUTANE [Suspect]
     Active Substance: ISOTRETINOIN
     Dosage: RMA ISSUE DATES: 29 JUNE 2023 11:56:00 AM, 03 AUGUST 2023 02:05:21 PM, 08 SEPTEMBER 2023 09:23:34 AM

REACTIONS (1)
  - Suicidal ideation [Unknown]
